FAERS Safety Report 9770361 (Version 4)
Quarter: 2014Q1

REPORT INFORMATION
  Report Type: Report from Study
  Country: GB (occurrence: GB)
  Receive Date: 20131218
  Receipt Date: 20140326
  Transmission Date: 20141002
  Serious: Yes (Death, Hospitalization)
  Sender: FDA-Public Use
  Company Number: GB-BRISTOL-MYERS SQUIBB COMPANY-19880772

PATIENT
  Age: 69 Year
  Sex: Male

DRUGS (19)
  1. IPILIMUMAB [Suspect]
     Indication: SMALL CELL LUNG CANCER
     Dosage: 850 MG INJ?MOST RECENT DOSE: 20SEP2013
     Dates: start: 20130920, end: 20130920
  2. CARBOPLATIN [Suspect]
     Indication: SMALL CELL LUNG CANCER
     Dates: start: 20130809, end: 20130920
  3. ETOPOSIDE [Suspect]
     Indication: SMALL CELL LUNG CANCER
     Dosage: 9AUG-22SEP13-200MG-ORAL
     Route: 042
     Dates: start: 20130809, end: 20130920
  4. TOPOTECAN [Suspect]
     Route: 048
     Dates: start: 20131121, end: 20131126
  5. SIMVASTATIN [Concomitant]
     Route: 048
     Dates: start: 199908
  6. INSULIN [Concomitant]
     Dosage: 1DF=20IU
     Route: 058
     Dates: start: 20131113
  7. OMEPRAZOLE [Concomitant]
     Dates: start: 20131010
  8. PREDNISOLONE [Concomitant]
     Dates: start: 20131105
  9. FORTISIP [Concomitant]
     Dosage: 1DF=3 TABS
     Route: 048
     Dates: start: 20131011
  10. CHOLESTYRAMINE [Concomitant]
     Dosage: 1DF=2 SACHETS
     Route: 048
     Dates: start: 20131107
  11. BIMATOPROST [Concomitant]
     Dosage: 1DF=0.03%-UNITS NOS
     Route: 042
     Dates: start: 20131016
  12. ADCAL [Concomitant]
     Dosage: 1DF=2 TABS
     Route: 048
     Dates: start: 20131113
  13. LOPERAMIDE [Concomitant]
     Route: 048
     Dates: start: 20131012
  14. RAMIPRIL [Concomitant]
     Dates: start: 20010629
  15. ADALAT LA [Concomitant]
     Dates: start: 20130205
  16. BENDROFLUAZIDE [Concomitant]
     Dates: start: 20040126
  17. GLIPIZIDE [Concomitant]
     Dates: start: 20061215
  18. METFORMIN [Concomitant]
     Dates: start: 20060517
  19. SIMVASTATIN [Concomitant]
     Dates: start: 199908

REACTIONS (5)
  - Malignant neoplasm progression [Fatal]
  - Diarrhoea [Not Recovered/Not Resolved]
  - Hyperglycaemia [Recovered/Resolved with Sequelae]
  - Febrile neutropenia [Unknown]
  - Colitis [Not Recovered/Not Resolved]
